FAERS Safety Report 10206538 (Version 1)
Quarter: 2014Q2

REPORT INFORMATION
  Report Type: Spontaneous
  Country: US (occurrence: US)
  Receive Date: 20140530
  Receipt Date: 20140530
  Transmission Date: 20141212
  Serious: No
  Sender: FDA-Public Use
  Company Number: US-GLAXOSMITHKLINE-A1027710A

PATIENT
  Age: 44 Year
  Sex: Male

DRUGS (3)
  1. FLOLAN [Suspect]
     Indication: COR PULMONALE CHRONIC
     Dosage: 40NGKM CONTINUOUS
     Route: 042
     Dates: start: 20081216
  2. TRACLEER [Concomitant]
  3. REVATIO [Concomitant]

REACTIONS (6)
  - Application site pruritus [Unknown]
  - Insomnia [Unknown]
  - Scratch [Unknown]
  - Skin irritation [Unknown]
  - Device infusion issue [Unknown]
  - Medical device complication [Unknown]
